FAERS Safety Report 15992992 (Version 4)
Quarter: 2020Q1

REPORT INFORMATION
  Report Type: Spontaneous
  Country: US (occurrence: US)
  Receive Date: 20190221
  Receipt Date: 20200304
  Transmission Date: 20200409
  Serious: Yes (Hospitalization, Disabling)
  Sender: FDA-Public Use
  Company Number: US-ZYDUS-033764

PATIENT
  Age: 62 Year
  Sex: Male

DRUGS (2)
  1. METRONIDAZOLE. [Concomitant]
     Active Substance: METRONIDAZOLE
     Indication: DIVERTICULITIS
     Route: 065
     Dates: start: 20181218, end: 20181227
  2. LEVOFLOXACIN. [Suspect]
     Active Substance: LEVOFLOXACIN
     Indication: DIVERTICULITIS
     Route: 048
     Dates: start: 20181218, end: 20181219

REACTIONS (14)
  - Gait disturbance [Not Recovered/Not Resolved]
  - Fear [Not Recovered/Not Resolved]
  - Guillain-Barre syndrome [Recovered/Resolved]
  - Weight decreased [Recovered/Resolved]
  - Constipation [Not Recovered/Not Resolved]
  - Chronic inflammatory demyelinating polyradiculoneuropathy [Recovered/Resolved]
  - Spinal osteoarthritis [Recovered/Resolved]
  - Tendon injury [Unknown]
  - Polyneuropathy [Not Recovered/Not Resolved]
  - Wheelchair user [Not Recovered/Not Resolved]
  - Ligament injury [Unknown]
  - Toxicity to various agents [Not Recovered/Not Resolved]
  - Gait inability [Not Recovered/Not Resolved]
  - Ligament laxity [Not Recovered/Not Resolved]

NARRATIVE: CASE EVENT DATE: 20181219
